FAERS Safety Report 26108099 (Version 2)
Quarter: 2025Q4

REPORT INFORMATION
  Report Type: Report from Study
  Country: CN (occurrence: CN)
  Receive Date: 20251201
  Receipt Date: 20251205
  Transmission Date: 20260118
  Serious: Yes (Death, Life-Threatening, Other)
  Sender: PFIZER
  Company Number: CN-PFIZER INC-PV202500138028

PATIENT

DRUGS (20)
  1. PACLITAXEL [Suspect]
     Active Substance: PACLITAXEL
     Indication: Oesophageal squamous cell carcinoma
     Dosage: 175 MG/M2, CYCLIC EVERY 3 WEEKS OR 50 MG/M2 WEEKLY INFUSIONAL (SOLVENT-BASED)
  2. PACLITAXEL [Suspect]
     Active Substance: PACLITAXEL
     Indication: Metastases to lymph nodes
  3. PACLITAXEL [Suspect]
     Active Substance: PACLITAXEL
     Indication: Oesophageal squamous cell carcinoma
     Dosage: 260 MG/M2, CYCLIC EVERY 3 WEEKS OR 100 MG WEEKLY
  4. PACLITAXEL [Suspect]
     Active Substance: PACLITAXEL
     Indication: Metastases to lymph nodes
  5. CISPLATIN [Suspect]
     Active Substance: CISPLATIN
     Indication: Oesophageal squamous cell carcinoma
     Dosage: 75 MG/M2, CYCLIC, EVERY 3 WEEKS OR 25 MG/M2 WEEKLY
  6. CISPLATIN [Suspect]
     Active Substance: CISPLATIN
     Indication: Metastases to lymph nodes
  7. CARBOPLATIN [Suspect]
     Active Substance: CARBOPLATIN
     Indication: Oesophageal squamous cell carcinoma
     Dosage: UNK, CYCLIC (AREA UNDER THE CURVE (AUC) = 5 EVERY 3 WEEKS OR AUC = 2 WEEKLY)
  8. CARBOPLATIN [Suspect]
     Active Substance: CARBOPLATIN
     Indication: Metastases to lymph nodes
  9. PEMBROLIZUMAB [Suspect]
     Active Substance: PEMBROLIZUMAB
     Indication: Oesophageal squamous cell carcinoma
     Dosage: 200 MG, CYCLIC, EVERY 3 WEEKS
  10. PEMBROLIZUMAB [Suspect]
     Active Substance: PEMBROLIZUMAB
     Indication: Metastases to lymph nodes
  11. CAMRELIZUMAB [Suspect]
     Active Substance: CAMRELIZUMAB
     Indication: Oesophageal squamous cell carcinoma
     Dosage: 200 MG, CYCLIC, EVERY 3 WEEKS
  12. CAMRELIZUMAB [Suspect]
     Active Substance: CAMRELIZUMAB
     Indication: Metastases to lymph nodes
  13. SINTILIMAB [Suspect]
     Active Substance: SINTILIMAB
     Indication: Oesophageal squamous cell carcinoma
     Dosage: 200 MG, CYCLIC, EVERY 3 WEEKS
  14. SINTILIMAB [Suspect]
     Active Substance: SINTILIMAB
     Indication: Metastases to lymph nodes
  15. TORIPALIMAB [Suspect]
     Active Substance: TORIPALIMAB
     Indication: Oesophageal squamous cell carcinoma
     Dosage: 240 MG, CYCLIC EVERY 3 WEEKS
  16. TORIPALIMAB [Suspect]
     Active Substance: TORIPALIMAB
     Indication: Metastases to lymph nodes
  17. TISLELIZUMAB [Suspect]
     Active Substance: TISLELIZUMAB
     Indication: Oesophageal squamous cell carcinoma
     Dosage: 200 MG, CYCLIC EVERY 3 WEEKS)
  18. TISLELIZUMAB [Suspect]
     Active Substance: TISLELIZUMAB
     Indication: Metastases to lymph nodes
  19. DURVALUMAB [Suspect]
     Active Substance: DURVALUMAB
     Indication: Oesophageal squamous cell carcinoma
     Dosage: 10 MG/KG CYCLIC EVERY 2 WEEKS
  20. DURVALUMAB [Suspect]
     Active Substance: DURVALUMAB
     Indication: Metastases to lymph nodes

REACTIONS (1)
  - Hypothyroidism [Fatal]
